FAERS Safety Report 25519145 (Version 2)
Quarter: 2025Q3

REPORT INFORMATION
  Report Type: Report from Study
  Country: GB (occurrence: GB)
  Receive Date: 20250704
  Receipt Date: 20250711
  Transmission Date: 20251021
  Serious: Yes (Other)
  Sender: LEO PHARM
  Company Number: GB-LEO Pharma-380659

PATIENT
  Age: 66 Year
  Sex: Male

DRUGS (2)
  1. ADBRY [Suspect]
     Active Substance: TRALOKINUMAB-LDRM
     Indication: Dermatitis atopic
     Route: 058
     Dates: start: 20240502
  2. ADBRY [Suspect]
     Active Substance: TRALOKINUMAB-LDRM
     Indication: Dermatitis atopic
     Dosage: 600MG (2X300MG) AT WEEK 0 THEN 300MG EVERY 2 WEEKS
     Route: 058

REACTIONS (3)
  - Dermatitis atopic [Not Recovered/Not Resolved]
  - Lower respiratory tract infection [Recovered/Resolved]
  - Product dose omission issue [Not Recovered/Not Resolved]
